FAERS Safety Report 23908313 (Version 1)
Quarter: 2024Q2

REPORT INFORMATION
  Report Type: Spontaneous
  Country: PT (occurrence: PT)
  Receive Date: 20240528
  Receipt Date: 20240528
  Transmission Date: 20240716
  Serious: Yes (Hospitalization)
  Sender: FDA-Public Use
  Company Number: PT-PTC THERAPEUTICS INC.-PT-2024PTC000720

PATIENT

DRUGS (5)
  1. DEFLAZACORT [Suspect]
     Active Substance: DEFLAZACORT
     Indication: Rash pruritic
     Dosage: UNK
  2. DEFLAZACORT [Suspect]
     Active Substance: DEFLAZACORT
     Indication: Pain in extremity
  3. LEVOCETIRIZINE [Concomitant]
     Active Substance: LEVOCETIRIZINE
     Indication: Rash pruritic
     Dosage: UNK
  4. ACEMETACIN [Concomitant]
     Active Substance: ACEMETACIN
     Indication: Pain in extremity
     Dosage: UNK
  5. ETORICOXIB [Concomitant]
     Active Substance: ETORICOXIB
     Indication: Pain in extremity
     Dosage: UNK

REACTIONS (17)
  - Distributive shock [Unknown]
  - Swelling face [Recovered/Resolved with Sequelae]
  - Lethargy [Recovered/Resolved with Sequelae]
  - Tachycardia [Recovered/Resolved with Sequelae]
  - Hypotension [Recovered/Resolved with Sequelae]
  - Peripheral coldness [Recovered/Resolved with Sequelae]
  - Inflammatory marker increased [Recovered/Resolved with Sequelae]
  - Multiple organ dysfunction syndrome [Recovered/Resolved with Sequelae]
  - Hyperdynamic left ventricle [Recovered/Resolved with Sequelae]
  - Blister [Recovered/Resolved with Sequelae]
  - Epidermal necrosis [Recovered/Resolved with Sequelae]
  - Nikolsky^s sign [Recovered/Resolved with Sequelae]
  - Infection [Recovered/Resolved with Sequelae]
  - Toxic epidermal necrolysis [Recovered/Resolved with Sequelae]
  - Rash [Recovered/Resolved with Sequelae]
  - Confusional state [Recovered/Resolved with Sequelae]
  - Off label use [Unknown]
